FAERS Safety Report 4722569-X (Version None)
Quarter: 2005Q3

REPORT INFORMATION
  Report Type: 
  Country: None (occurrence: None)
  Receive Date: 20050722
  Receipt Date: 20050613
  Transmission Date: 20060218
  Serious: No
  Sender: FDA-Public Use
  Company Number: JP-MERCK-0506USA02629

PATIENT
  Age: 56 Year
  Sex: Male

DRUGS (9)
  1. PEPCID [Suspect]
     Indication: PANCREATITIS ACUTE
     Route: 042
     Dates: start: 20050521, end: 20050530
  2. BUSCOPAN [Concomitant]
     Indication: PANCREATITIS ACUTE
     Route: 041
     Dates: start: 20050521, end: 20050602
  3. MIRACLID [Suspect]
     Route: 042
     Dates: start: 20050521, end: 20050530
  4. CEFAMEZIN [Concomitant]
     Indication: PANCREATITIS ACUTE
     Route: 041
     Dates: start: 20050521, end: 20050524
  5. REMINARON [Suspect]
     Indication: PANCREATITIS ACUTE
     Route: 041
     Dates: start: 20050521, end: 20050524
  6. REMINARON [Suspect]
     Route: 041
     Dates: start: 20050525, end: 20050602
  7. TAKEPRON [Concomitant]
     Route: 048
     Dates: start: 20050531
  8. PANCREATIN [Concomitant]
     Route: 048
     Dates: start: 20050531
  9. CAMOSTATE [Concomitant]
     Route: 048
     Dates: start: 20050601

REACTIONS (3)
  - LIVER DISORDER [None]
  - RENAL IMPAIRMENT [None]
  - WHITE BLOOD CELL COUNT DECREASED [None]
